FAERS Safety Report 10970265 (Version 3)
Quarter: 2015Q3

REPORT INFORMATION
  Report Type: Spontaneous
  Country: BR (occurrence: BR)
  Receive Date: 20150331
  Receipt Date: 20150917
  Transmission Date: 20151125
  Serious: Yes (Hospitalization, Other)
  Sender: FDA-Public Use
  Company Number: BR-AMGEN-BRASP2015029760

PATIENT
  Age: 46 Year
  Sex: Female
  Weight: 55 kg

DRUGS (13)
  1. ENBREL [Suspect]
     Active Substance: ETANERCEPT
     Dosage: 50 MG, WEEKLY,ON TUESDAY
     Route: 058
     Dates: start: 2013
  2. ENBREL [Suspect]
     Active Substance: ETANERCEPT
     Indication: RHEUMATOID ARTHRITIS
     Dosage: 25 MG WEEKLY (25 MG ON TUES/25 MG ON FRIDAYS)
     Route: 058
     Dates: start: 2005, end: 2013
  3. ENALAPRIL [Concomitant]
     Active Substance: ENALAPRIL
     Dosage: 2 TABLETS OF 25 MG, DAILY
  4. BENZETACIL                         /00000904/ [Concomitant]
     Active Substance: PENICILLIN G BENZATHINE
     Dosage: UNK
  5. RIVOTRIL [Concomitant]
     Active Substance: CLONAZEPAM
     Indication: INSOMNIA
     Dosage: 18 GTT, DAILY
  6. METHOTREXATE [Concomitant]
     Active Substance: METHOTREXATE
     Indication: RHEUMATOID ARTHRITIS
     Dosage: UNK
  7. NIFEDIPINE. [Concomitant]
     Active Substance: NIFEDIPINE
     Indication: HYPERTENSION
     Dosage: 20 MG
  8. DEFLAIMMUN [Concomitant]
     Dosage: UNK
     Dates: start: 20150817
  9. ATENOLOL. [Concomitant]
     Active Substance: ATENOLOL
     Dosage: 20 MG
  10. DORENE [Concomitant]
     Dosage: UNK
     Dates: start: 20150817
  11. SIMVASTATIN. [Concomitant]
     Active Substance: SIMVASTATIN
     Dosage: 20 MG
  12. METICORTEN [Concomitant]
     Active Substance: PREDNISONE
     Dosage: UNK
     Dates: start: 1999
  13. OMEPRAZOLE. [Concomitant]
     Active Substance: OMEPRAZOLE
     Dosage: UNK

REACTIONS (15)
  - Hypoaesthesia [Not Recovered/Not Resolved]
  - Coma [Recovered/Resolved with Sequelae]
  - Rheumatoid arthritis [Recovered/Resolved]
  - Urinary tract infection [Not Recovered/Not Resolved]
  - Device dislocation [Recovered/Resolved]
  - Alopecia [Not Recovered/Not Resolved]
  - Arthropathy [Recovered/Resolved]
  - Memory impairment [Not Recovered/Not Resolved]
  - Panic disorder [Not Recovered/Not Resolved]
  - Rash macular [Recovered/Resolved]
  - Cerebrovascular accident [Recovered/Resolved with Sequelae]
  - Depression [Not Recovered/Not Resolved]
  - Condition aggravated [Recovered/Resolved]
  - Crying [Not Recovered/Not Resolved]
  - Drug-induced liver injury [Not Recovered/Not Resolved]

NARRATIVE: CASE EVENT DATE: 2007
